FAERS Safety Report 22189091 (Version 1)
Quarter: 2023Q2

REPORT INFORMATION
  Report Type: Report from Study
  Country: US (occurrence: US)
  Receive Date: 20230410
  Receipt Date: 20230410
  Transmission Date: 20230721
  Serious: Yes (Hospitalization, Other)
  Sender: FDA-Public Use
  Company Number: US-ABBVIE-4716361

PATIENT
  Age: 51 Year
  Sex: Male

DRUGS (1)
  1. SKYRIZI [Suspect]
     Active Substance: RISANKIZUMAB-RZAA
     Indication: Crohn^s disease
     Dosage: FORM STRENGTH 150 MILLIGRAM
     Route: 042

REACTIONS (13)
  - Obstructive pancreatitis [Unknown]
  - Blood disorder [Unknown]
  - Small intestinal obstruction [Unknown]
  - Multiple fractures [Unknown]
  - Procedural complication [Unknown]
  - Spinal column injury [Unknown]
  - Ureteric injury [Unknown]
  - Pulmonary thrombosis [Unknown]
  - Hydrocele [Unknown]
  - Surgery [Unknown]
  - Hydronephrosis [Unknown]
  - Urinary incontinence [Unknown]
  - Concussion [Unknown]

NARRATIVE: CASE EVENT DATE: 20230321
